FAERS Safety Report 8212609-8 (Version None)
Quarter: 2012Q1

REPORT INFORMATION
  Report Type: 
  Country: None (occurrence: None)
  Receive Date: 20120315
  Receipt Date: 20120308
  Transmission Date: 20120608
  Serious: Yes (Disabling, Other)
  Sender: FDA-Public Use
  Company Number: DE-SANOFI-AVENTIS-2012SA016565

PATIENT
  Age: 75 Year
  Sex: Female
  Weight: 68 kg

DRUGS (9)
  1. TRASTUZUMAB [Suspect]
     Route: 042
     Dates: start: 20110601
  2. TRASTUZUMAB [Suspect]
     Route: 042
     Dates: end: 20120111
  3. DEXAMETHASONE [Concomitant]
     Dates: start: 20110531, end: 20110930
  4. PALONOSETRON [Concomitant]
     Route: 042
     Dates: start: 20110601, end: 20110928
  5. SIMVASTATIN [Concomitant]
  6. TRASTUZUMAB [Suspect]
     Route: 042
  7. DOCETAXEL [Suspect]
     Route: 042
     Dates: start: 20110601, end: 20110928
  8. LEVOTHYROXINE SODIUM [Concomitant]
  9. CARBOPLATIN [Suspect]
     Route: 042
     Dates: start: 20110601, end: 20110928

REACTIONS (3)
  - BLINDNESS [None]
  - SCOTOMA [None]
  - PAPILLOEDEMA [None]
